FAERS Safety Report 9978071 (Version 1)
Quarter: 2014Q1

REPORT INFORMATION
  Report Type: Report from Study
  Country: US (occurrence: US)
  Receive Date: 20140306
  Receipt Date: 20140306
  Transmission Date: 20141002
  Serious: No
  Sender: FDA-Public Use
  Company Number: US-ABBVIE-13P-163-1161904-00

PATIENT
  Sex: Female
  Weight: 68.1 kg

DRUGS (4)
  1. HUMIRA [Suspect]
     Indication: PSORIATIC ARTHROPATHY
     Dates: start: 2013, end: 2013
  2. BENAZEPRIL [Concomitant]
     Indication: HYPERTENSION
  3. PREDNISONE [Concomitant]
     Indication: PSORIATIC ARTHROPATHY
  4. CIMZIA [Concomitant]
     Indication: PSORIATIC ARTHROPATHY
     Dates: start: 2013

REACTIONS (1)
  - Rash [Recovered/Resolved]
